FAERS Safety Report 7979099-1 (Version None)
Quarter: 2011Q4

REPORT INFORMATION
  Report Type: 
  Country: None (occurrence: None)
  Receive Date: 20111214
  Receipt Date: 20111212
  Transmission Date: 20120403
  Serious: No
  Sender: FDA-Public Use
  Company Number: US-PFIZER INC-2011302215

PATIENT
  Sex: Male
  Weight: 15.873 kg

DRUGS (2)
  1. JUNIOR STRENGTH ADVIL [Suspect]
     Indication: HEADACHE
  2. JUNIOR STRENGTH ADVIL [Suspect]
     Indication: PYREXIA
     Dosage: UNK
     Dates: start: 20111201, end: 20111201

REACTIONS (1)
  - ORAL DISCOMFORT [None]
